FAERS Safety Report 8050520-6 (Version None)
Quarter: 2012Q1

REPORT INFORMATION
  Report Type: 
  Country: None (occurrence: None)
  Receive Date: 20120117
  Receipt Date: 20120112
  Transmission Date: 20120608
  Serious: Yes (Hospitalization, Other)
  Sender: FDA-Public Use
  Company Number: US-BAYER-2012-004836

PATIENT
  Age: 6 Year
  Sex: Male

DRUGS (2)
  1. BLINDED SORAFENIB (RAF KINASE INHIBITOR) [Suspect]
     Indication: GLIOMA
     Dosage: UNK
     Dates: start: 20111122, end: 20111220
  2. BLINDED SORAFENIB (RAF KINASE INHIBITOR) [Suspect]
     Dosage: UNK
     Dates: start: 20111228, end: 20120111

REACTIONS (4)
  - WEIGHT INCREASED [None]
  - ASCITES [None]
  - FLATULENCE [None]
  - ABDOMINAL DISTENSION [None]
